FAERS Safety Report 18066598 (Version 3)
Quarter: 2020Q4

REPORT INFORMATION
  Report Type: Spontaneous
  Country: CA (occurrence: CA)
  Receive Date: 20200724
  Receipt Date: 20201012
  Transmission Date: 20210113
  Serious: Yes (Hospitalization, Other)
  Sender: FDA-Public Use
  Company Number: CA-PFIZER INC-2020262535

PATIENT
  Age: 53 Year
  Sex: Female
  Weight: 64.9 kg

DRUGS (10)
  1. RIVAROXABAN [Concomitant]
     Active Substance: RIVAROXABAN
     Dosage: 20 MG, ONCE DAILY
  2. SILVER SULFADIAZINE. [Concomitant]
     Active Substance: SILVER SULFADIAZINE
     Dosage: UNK, BID (TWICE A DAY)
  3. SUCRALFATE. [Concomitant]
     Active Substance: SUCRALFATE
     Dosage: 1 G, BID (TWICE A DAY)
  4. PANTOPRAZOLE [Concomitant]
     Active Substance: PANTOPRAZOLE
     Dosage: 40 MG, ONCE DAILY
  5. CYANOCOBALAMIN. [Concomitant]
     Active Substance: CYANOCOBALAMIN
     Dosage: 1000 UG, MONTHLY
     Route: 030
  6. MOMETASONE [Concomitant]
     Active Substance: MOMETASONE
     Dosage: UNK, 2X/DAY
     Route: 061
  7. ROSUVASTATIN. [Concomitant]
     Active Substance: ROSUVASTATIN
     Dosage: 10 MG, ONCE DAILY
  8. LORBRENA [Suspect]
     Active Substance: LORLATINIB
     Dosage: 75 MG, ONCE A DAY
     Route: 048
     Dates: start: 20200908
  9. LORBRENA [Suspect]
     Active Substance: LORLATINIB
     Dosage: 50 MG, ONCE A DAY
     Dates: start: 20190813
  10. METOCLOPRAMIDE. [Concomitant]
     Active Substance: METOCLOPRAMIDE
     Dosage: 5 MG, AS NEEDED, TID (THREE TIMES A DAY)

REACTIONS (4)
  - Mutism [Unknown]
  - Gait inability [Unknown]
  - Neoplasm progression [Unknown]
  - Dementia Alzheimer^s type [Recovering/Resolving]
